FAERS Safety Report 6368284-0 (Version None)
Quarter: 2009Q3

REPORT INFORMATION
  Report Type: 
  Country: None (occurrence: None)
  Receive Date: 20090922
  Receipt Date: 20090914
  Transmission Date: 20100115
  Serious: Yes (Hospitalization)
  Sender: FDA-Public Use
  Company Number: US-MYLANLABS-2009S1008358

PATIENT
  Age: 79 Year
  Sex: Female

DRUGS (7)
  1. ENTECAVIR [Suspect]
     Indication: HEPATITIS B
     Route: 048
     Dates: start: 20040302
  2. SPIRONOLACTONE TABLETS, USP [Suspect]
     Dates: end: 20090410
  3. NADOLOL [Concomitant]
     Dates: start: 20070327
  4. PANTOPRAZOLE [Concomitant]
     Dates: start: 20031101
  5. BLEPHAMIDE /00319401/ [Concomitant]
     Dates: start: 20080710
  6. LASIX [Concomitant]
     Dates: start: 20090715
  7. UNIPHYL [Concomitant]
     Dates: start: 20090427

REACTIONS (5)
  - DYSPNOEA [None]
  - HYPERKALAEMIA [None]
  - HYPONATRAEMIA [None]
  - OESOPHAGEAL VARICES HAEMORRHAGE [None]
  - PNEUMONIA [None]
